FAERS Safety Report 6456751-0 (Version None)
Quarter: 2009Q4

REPORT INFORMATION
  Report Type: 
  Country: None (occurrence: None)
  Receive Date: 20091119
  Receipt Date: 20091104
  Transmission Date: 20100525
  Serious: Yes (Disabling)
  Sender: FDA-Public Use
  Company Number: 2009EU000345

PATIENT
  Age: 55 Year
  Sex: Female
  Weight: 54 kg

DRUGS (6)
  1. PROGRAF [Suspect]
     Indication: RENAL TRANSPLANT
     Dosage: 6 MG, UID/QD, ORAL
     Route: 048
     Dates: start: 20070705, end: 20090310
  2. MYCOPHENOLATE MOFETIL [Suspect]
     Indication: RENAL TRANSPLANT
     Dosage: ORAL
     Route: 048
  3. LEVOTHYROXINE SODIUM [Suspect]
     Indication: HYPOTHYROIDISM
     Dosage: 100 UG, UID/QD, ORAL
     Route: 048
     Dates: start: 20050420
  4. ISRADIPINE [Suspect]
     Indication: HYPERTENSION
     Dosage: 5 MG, UID/QD, ORAL
     Route: 048
     Dates: start: 20060418
  5. MOPRAL (OMEPRAZOLE SODIUM) [Concomitant]
  6. IRBESARTAN [Concomitant]

REACTIONS (5)
  - BLINDNESS [None]
  - CHOROIDITIS [None]
  - DIABETES MELLITUS [None]
  - METAMORPHOPSIA [None]
  - SCOTOMA [None]
